FAERS Safety Report 7511701-0 (Version None)
Quarter: 2011Q2

REPORT INFORMATION
  Report Type: 
  Country: None (occurrence: None)
  Receive Date: 20110531
  Receipt Date: 20110518
  Transmission Date: 20111010
  Serious: Yes (Hospitalization)
  Sender: FDA-Public Use
  Company Number: US-ASTELLAS-2011US002512

PATIENT
  Age: 59 Year
  Sex: Male

DRUGS (4)
  1. AMBISOME [Suspect]
     Indication: FUNGAL INFECTION
     Dosage: UNK
     Route: 065
     Dates: start: 20090901, end: 20091001
  2. AMBISOME [Suspect]
     Dosage: UNK
     Route: 065
     Dates: start: 20090101
  3. CHEMOTHERAPY [Concomitant]
     Indication: ACUTE MYELOID LEUKAEMIA
  4. CHEMOTHERAPY [Concomitant]
     Indication: MYELODYSPLASTIC SYNDROME
     Dosage: UNK
     Route: 065

REACTIONS (1)
  - URINE POTASSIUM ABNORMAL [None]
